FAERS Safety Report 17072707 (Version 1)
Quarter: 2019Q4

REPORT INFORMATION
  Report Type: Spontaneous
  Country: CN (occurrence: CN)
  Receive Date: 20191125
  Receipt Date: 20191125
  Transmission Date: 20200122
  Serious: Yes (Hospitalization)
  Sender: FDA-Public Use
  Company Number: CN-BAYER-2019-207376

PATIENT
  Age: 55 Year
  Sex: Female

DRUGS (1)
  1. PRIMOVIST [Suspect]
     Active Substance: GADOXETATE DISODIUM
     Indication: MAGNETIC RESONANCE IMAGING LIVER
     Dosage: 10 ML, ONCE
     Dates: start: 20181227, end: 20181227

REACTIONS (14)
  - Hepatic function abnormal [Recovering/Resolving]
  - Myalgia [Not Recovered/Not Resolved]
  - Asthenia [None]
  - Anaphylactic shock [Recovering/Resolving]
  - Pain [Not Recovered/Not Resolved]
  - Blood pressure decreased [Recovering/Resolving]
  - Gait disturbance [None]
  - Nocturia [Recovering/Resolving]
  - Headache [Recovering/Resolving]
  - Internal injury [Recovering/Resolving]
  - Loss of consciousness [Recovering/Resolving]
  - Dizziness [Recovering/Resolving]
  - Abdominal distension [Not Recovered/Not Resolved]
  - Nephropathy toxic [Recovering/Resolving]

NARRATIVE: CASE EVENT DATE: 20181227
